FAERS Safety Report 8782345 (Version 2)
Quarter: 2015Q4

REPORT INFORMATION
  Report Type: Spontaneous
  Country: US (occurrence: US)
  Receive Date: 20120913
  Receipt Date: 20151001
  Transmission Date: 20160305
  Serious: Yes (Other)
  Sender: FDA-Public Use
  Company Number: US-ASTRAZENECA-2012SE60420

PATIENT
  Age: 65 Year
  Sex: Female
  Weight: 81.6 kg

DRUGS (8)
  1. ASPIRIN. [Concomitant]
     Active Substance: ASPIRIN
     Indication: CARDIOVASCULAR DISORDER
     Route: 048
  2. NEXIUM [Suspect]
     Active Substance: ESOMEPRAZOLE MAGNESIUM
     Indication: GASTROOESOPHAGEAL REFLUX DISEASE
     Route: 048
     Dates: start: 2015
  3. GABAPENTIN. [Concomitant]
     Active Substance: GABAPENTIN
     Indication: BACK INJURY
     Route: 048
     Dates: start: 2013
  4. GABAPENTIN. [Concomitant]
     Active Substance: GABAPENTIN
     Indication: SCIATIC NERVE INJURY
     Route: 048
     Dates: start: 2013
  5. NEXIUM [Suspect]
     Active Substance: ESOMEPRAZOLE MAGNESIUM
     Indication: GASTROOESOPHAGEAL REFLUX DISEASE
     Route: 048
  6. FLEXERIL [Concomitant]
     Active Substance: CYCLOBENZAPRINE HYDROCHLORIDE
     Indication: MUSCLE TIGHTNESS
     Dosage: GENERIC
     Route: 048
     Dates: start: 2013
  7. PRAVASTATIN [Concomitant]
     Active Substance: PRAVASTATIN\PRAVASTATIN SODIUM
  8. IMODIUM [Concomitant]
     Active Substance: LOPERAMIDE HYDROCHLORIDE
     Indication: DIARRHOEA

REACTIONS (13)
  - Road traffic accident [Unknown]
  - Drug dose omission [Unknown]
  - Intervertebral disc protrusion [Unknown]
  - Cardiovascular disorder [Unknown]
  - Head injury [Unknown]
  - Back injury [Unknown]
  - Sciatic nerve injury [Unknown]
  - Chest pain [Unknown]
  - Diarrhoea [Unknown]
  - Intentional product use issue [Unknown]
  - Cerebrovascular accident [Unknown]
  - Nausea [Unknown]
  - Headache [Unknown]

NARRATIVE: CASE EVENT DATE: 2015
